FAERS Safety Report 24744894 (Version 1)
Quarter: 2024Q4

REPORT INFORMATION
  Report Type: Spontaneous
  Country: US (occurrence: None)
  Receive Date: 20241217
  Receipt Date: 20241217
  Transmission Date: 20250114
  Serious: No
  Sender: Public
  Company Number: None

PATIENT
  Sex: Female

DRUGS (5)
  1. VIGABATRIN [Suspect]
     Active Substance: VIGABATRIN
     Indication: Epilepsy
     Dosage: FREQUENCY : TWICE A DAY;?
     Route: 048
  2. VIGABATRIN [Concomitant]
     Active Substance: VIGABATRIN
  3. EPIDIOLEX [Concomitant]
     Active Substance: CANNABIDIOL
  4. CLONAZEPAM [Concomitant]
     Active Substance: CLONAZEPAM
  5. DIAZEPAM [Concomitant]
     Active Substance: DIAZEPAM

REACTIONS (3)
  - Tremor [None]
  - Withdrawal syndrome [None]
  - Therapy interrupted [None]
